FAERS Safety Report 21618410 (Version 1)
Quarter: 2022Q4

REPORT INFORMATION
  Report Type: Spontaneous
  Country: CN (occurrence: CN)
  Receive Date: 20221119
  Receipt Date: 20221119
  Transmission Date: 20230112
  Serious: Yes (Hospitalization, Other)
  Sender: FDA-Public Use
  Company Number: None

PATIENT
  Age: 58 Year
  Sex: Female
  Weight: 42 kg

DRUGS (4)
  1. CYCLOPHOSPHAMIDE [Suspect]
     Active Substance: CYCLOPHOSPHAMIDE
     Indication: Breast cancer female
     Dosage: 820 MG, QD DILUTED WITH 100 ML OF SODIUM CHLORIDE INJECTION
     Route: 041
     Dates: start: 20221025, end: 20221025
  2. SODIUM CHLORIDE [Suspect]
     Active Substance: SODIUM CHLORIDE
     Indication: Medication dilution
     Dosage: 100 ML, QD USED TO DILUTE 0.82 G OF PIRARUBICIN INJECTION
     Route: 041
     Dates: start: 20221025, end: 20221025
  3. PIRARUBICIN HYDROCHLORIDE [Suspect]
     Active Substance: PIRARUBICIN HYDROCHLORIDE
     Indication: Breast cancer female
     Dosage: 0.82  G, QD DILUTED WITH 100 ML OF SODIUM CHLORIDE INJECTION
     Route: 041
     Dates: start: 20221025, end: 20221025
  4. SODIUM CHLORIDE [Concomitant]
     Active Substance: SODIUM CHLORIDE
     Indication: Breast cancer female
     Dosage: 100 ML, QD USED TO DILUTE 820 MG OF CYCLOPHOSPHAMIDE INJECTION
     Route: 041
     Dates: start: 20221025, end: 20221025

REACTIONS (2)
  - White blood cell count decreased [Recovering/Resolving]
  - Neutrophil count decreased [Recovering/Resolving]

NARRATIVE: CASE EVENT DATE: 20221104
